FAERS Safety Report 6172095-9 (Version None)
Quarter: 2009Q2

REPORT INFORMATION
  Report Type: 
  Country: None (occurrence: None)
  Receive Date: 20090428
  Receipt Date: 20090428
  Transmission Date: 20091009
  Serious: Yes (Other)
  Sender: FDA-Public Use
  Company Number: None

PATIENT
  Age: 29 Year
  Sex: Female
  Weight: 63.5036 kg

DRUGS (1)
  1. CELECOXIB [Suspect]
     Indication: ARTHRALGIA
     Dosage: 1 OR 2 PILLS PER DAY PO
     Route: 048
     Dates: start: 20080827, end: 20080901

REACTIONS (8)
  - DIARRHOEA [None]
  - DIZZINESS [None]
  - HEADACHE [None]
  - MOVEMENT DISORDER [None]
  - MUSCLE SPASMS [None]
  - NAUSEA [None]
  - RASH [None]
  - VOMITING [None]
